FAERS Safety Report 19189182 (Version 2)
Quarter: 2021Q2

REPORT INFORMATION
  Report Type: Spontaneous
  Country: US (occurrence: US)
  Receive Date: 20210428
  Receipt Date: 20210430
  Transmission Date: 20210717
  Serious: No
  Sender: FDA-Public Use
  Company Number: US-BAYER-2021-130834

PATIENT
  Age: 74 Year
  Sex: Male

DRUGS (2)
  1. CLARITIN [Suspect]
     Active Substance: LORATADINE
     Indication: MULTIPLE ALLERGIES
  2. CLARITIN [Suspect]
     Active Substance: LORATADINE
     Indication: SNEEZING
     Dosage: 1 DF
     Route: 060

REACTIONS (1)
  - Wrong technique in product usage process [Unknown]
